FAERS Safety Report 10441431 (Version 1)
Quarter: 2014Q3

REPORT INFORMATION
  Report Type: Spontaneous
  Country: BR (occurrence: BR)
  Receive Date: 20140909
  Receipt Date: 20140909
  Transmission Date: 20150326
  Serious: Yes (Other)
  Sender: FDA-Public Use
  Company Number: BR-ASTRAZENECA-2014SE65774

PATIENT
  Age: 724 Month
  Sex: Male
  Weight: 76 kg

DRUGS (11)
  1. SELOKEN [Suspect]
     Active Substance: METOPROLOL
     Route: 048
     Dates: start: 2004
  2. GALVUS MET [Suspect]
     Active Substance: METFORMIN HYDROCHLORIDE\VILDAGLIPTIN
     Dosage: 50/850 MG DAILY
     Route: 065
  3. RENITEC [Concomitant]
     Active Substance: ENALAPRIL MALEATE
     Dates: start: 201303, end: 201403
  4. PLAVIX [Concomitant]
     Active Substance: CLOPIDOGREL BISULFATE
     Dates: start: 2006
  5. PANTOZOL [Concomitant]
     Active Substance: PANTOPRAZOLE SODIUM
     Dates: start: 2006
  6. VICTOZA [Suspect]
     Active Substance: LIRAGLUTIDE
     Dosage: 2 CC/DAY
     Route: 065
     Dates: start: 201308, end: 201407
  7. SOMALGIN CARDIO [Concomitant]
     Active Substance: ASPIRIN\DIHYDROXYALUMINUM AMINOACETATE ANHYDROUS\MAGNESIUM CARBONATE
     Dates: start: 2004
  8. DESARCOR [Suspect]
     Active Substance: CANDESARTAN CILEXETIL
     Route: 048
     Dates: start: 2009, end: 201401
  9. CRESTOR [Suspect]
     Active Substance: ROSUVASTATIN CALCIUM
     Route: 048
     Dates: start: 2013, end: 20140831
  10. DESARCOR [Suspect]
     Active Substance: CANDESARTAN CILEXETIL
     Route: 048
     Dates: start: 201401, end: 201407
  11. CRESTOR [Suspect]
     Active Substance: ROSUVASTATIN CALCIUM
     Route: 048
     Dates: start: 2008, end: 2013

REACTIONS (3)
  - Weight decreased [Unknown]
  - Balance disorder [Not Recovered/Not Resolved]
  - Vertigo [Not Recovered/Not Resolved]

NARRATIVE: CASE EVENT DATE: 201308
